FAERS Safety Report 7386304-1 (Version None)
Quarter: 2011Q1

REPORT INFORMATION
  Report Type: 
  Country: None (occurrence: None)
  Receive Date: 20110331
  Receipt Date: 20110328
  Transmission Date: 20110831
  Serious: Yes (Death, Hospitalization, Other)
  Sender: FDA-Public Use
  Company Number: US-ASTRAZENECA-2011SE17770

PATIENT
  Age: 78 Year
  Sex: Male

DRUGS (7)
  1. AVANDIA [Concomitant]
     Dates: start: 20060101
  2. DARVOCET [Concomitant]
     Dates: start: 20060101
  3. SEROQUEL [Suspect]
     Route: 048
     Dates: start: 20050101
  4. NORVASC [Concomitant]
     Dates: start: 20060101
  5. CYCLOBENZAPRINE [Concomitant]
     Dates: start: 20060101
  6. ATENOLOL [Concomitant]
     Dates: start: 20060101
  7. NOVOLOG [Concomitant]
     Dates: start: 20060101

REACTIONS (8)
  - CEREBRAL INFARCTION [None]
  - CEREBROVASCULAR DISORDER [None]
  - TYPE 2 DIABETES MELLITUS [None]
  - HYPERTENSION [None]
  - RENAL FAILURE CHRONIC [None]
  - HUMERUS FRACTURE [None]
  - ARTERIOSCLEROSIS [None]
  - DEMENTIA ALZHEIMER'S TYPE [None]
